FAERS Safety Report 7883989-8 (Version None)
Quarter: 2011Q4

REPORT INFORMATION
  Report Type: 
  Country: None (occurrence: None)
  Receive Date: 20111102
  Receipt Date: 20111026
  Transmission Date: 20120403
  Serious: Yes (Hospitalization, Other)
  Sender: FDA-Public Use
  Company Number: PHHY2011JP93791

PATIENT
  Age: 59 Year
  Sex: Female

DRUGS (1)
  1. CLOZARIL [Suspect]
     Indication: SCHIZOPHRENIA
     Route: 048
     Dates: start: 20111005, end: 20111020

REACTIONS (8)
  - PLATELET COUNT DECREASED [None]
  - BLOOD CREATINE PHOSPHOKINASE INCREASED [None]
  - INFECTION [None]
  - DISSEMINATED INTRAVASCULAR COAGULATION [None]
  - RENAL FAILURE [None]
  - SEPTIC SHOCK [None]
  - BLOOD PRESSURE DIASTOLIC DECREASED [None]
  - PYREXIA [None]
